FAERS Safety Report 18196377 (Version 2)
Quarter: 2022Q4

REPORT INFORMATION
  Report Type: Spontaneous
  Country: FR (occurrence: FR)
  Receive Date: 20200825
  Receipt Date: 20221004
  Transmission Date: 20230113
  Serious: Yes (Other)
  Sender: FDA-Public Use
  Company Number: None

PATIENT
  Age: 35 Year
  Sex: Female

DRUGS (4)
  1. PRIVIGEN [Suspect]
     Active Substance: HUMAN IMMUNOGLOBULIN G
     Indication: Multifocal motor neuropathy
     Dosage: 140 GRAM
     Route: 041
     Dates: start: 20200629, end: 20200701
  2. PRIVIGEN [Suspect]
     Active Substance: HUMAN IMMUNOGLOBULIN G
     Dosage: 140 GRAM
     Route: 041
     Dates: start: 20200629, end: 20200701
  3. ESOMEPRAZOLE MYLAN [ESOMEPRAZOLE MAGNESIUM] [Concomitant]
     Indication: Burn oesophageal
     Dosage: 20 MILLIGRAM
     Route: 048
     Dates: start: 20200702, end: 20200702
  4. POLARAMINE [Concomitant]
     Active Substance: DEXCHLORPHENIRAMINE MALEATE
     Indication: Premedication
     Route: 041
     Dates: start: 20200629, end: 20200701

REACTIONS (1)
  - Agranulocytosis [Recovered/Resolved]

NARRATIVE: CASE EVENT DATE: 20200703
